FAERS Safety Report 7349823-X (Version None)
Quarter: 2011Q1

REPORT INFORMATION
  Report Type: 
  Country: None (occurrence: None)
  Receive Date: 20110309
  Receipt Date: 20110309
  Transmission Date: 20110831
  Serious: No
  Sender: FDA-Public Use
  Company Number: None

PATIENT
  Age: 60 Year
  Sex: Male

DRUGS (2)
  1. ISONIAZID [Suspect]
     Dates: start: 20090203, end: 20090209
  2. ISONIAZID [Suspect]
     Dates: start: 20090308, end: 20090318

REACTIONS (7)
  - PNEUMONIA [None]
  - CHROMATURIA [None]
  - ASPARTATE AMINOTRANSFERASE INCREASED [None]
  - HAEMATURIA [None]
  - CALCULUS URINARY [None]
  - ALANINE AMINOTRANSFERASE INCREASED [None]
  - LIVER DISORDER [None]
